FAERS Safety Report 9732640 (Version 5)
Quarter: 2014Q1

REPORT INFORMATION
  Report Type: Report from Study
  Country: US (occurrence: US)
  Receive Date: 20131205
  Receipt Date: 20140124
  Transmission Date: 20141002
  Serious: Yes (Other)
  Sender: FDA-Public Use
  Company Number: US-SA-2013SA123177

PATIENT
  Age: 40 Year
  Sex: Female
  Weight: 180 kg

DRUGS (2)
  1. AUBAGIO [Suspect]
     Indication: MULTIPLE SCLEROSIS
     Dosage: START DATE: 20-NOV-2013
     Route: 048
     Dates: start: 201311
  2. AUBAGIO [Suspect]
     Indication: MULTIPLE SCLEROSIS
     Route: 065

REACTIONS (15)
  - Convulsion [Unknown]
  - Dizziness [Unknown]
  - Disorientation [Unknown]
  - Muscular weakness [Unknown]
  - Depression [Unknown]
  - Hypoaesthesia [Unknown]
  - Headache [Unknown]
  - Ageusia [Unknown]
  - Visual acuity reduced [Unknown]
  - Balance disorder [Unknown]
  - Paraesthesia [Unknown]
  - Multiple sclerosis relapse [Unknown]
  - Nausea [Recovered/Resolved]
  - Diarrhoea [Recovered/Resolved]
  - Decreased appetite [Recovered/Resolved]
